FAERS Safety Report 24280763 (Version 4)
Quarter: 2025Q2

REPORT INFORMATION
  Report Type: Report from Study
  Country: CA (occurrence: CA)
  Receive Date: 20240904
  Receipt Date: 20250411
  Transmission Date: 20250717
  Serious: Yes (Other)
  Sender: TAKEDA
  Company Number: CA-TAKEDA-2023TUS023051

PATIENT
  Age: 67 Year
  Sex: Female

DRUGS (9)
  1. VEDOLIZUMAB [Suspect]
     Active Substance: VEDOLIZUMAB
     Indication: Colitis ulcerative
  2. VEDOLIZUMAB [Suspect]
     Active Substance: VEDOLIZUMAB
  3. VEDOLIZUMAB [Suspect]
     Active Substance: VEDOLIZUMAB
     Dosage: 300 MILLIGRAM, Q4WEEKS
     Dates: start: 20240927
  4. VEDOLIZUMAB [Suspect]
     Active Substance: VEDOLIZUMAB
     Dosage: 300 MILLIGRAM, Q4WEEKS
     Dates: end: 20250307
  5. PANTOPRAZOLE [Concomitant]
     Active Substance: PANTOPRAZOLE
  6. CYCLOBENZAPRINE [Concomitant]
     Active Substance: CYCLOBENZAPRINE
  7. BUTYLSCOPOLAMINE BROMIDE [Concomitant]
     Active Substance: BUTYLSCOPOLAMINE BROMIDE
  8. PINAVERIUM BROMIDE [Concomitant]
     Active Substance: PINAVERIUM BROMIDE
  9. NAPROXEN [Concomitant]
     Active Substance: NAPROXEN

REACTIONS (26)
  - Colitis ulcerative [Unknown]
  - Superior mesenteric artery syndrome [Unknown]
  - Nephrolithiasis [Unknown]
  - Pouchitis [Unknown]
  - Haemoglobin abnormal [Unknown]
  - Frequent bowel movements [Unknown]
  - Chronic gastritis [Unknown]
  - Mucous stools [Unknown]
  - Pain [Unknown]
  - Affective disorder [Unknown]
  - Insomnia [Unknown]
  - Drug ineffective [Unknown]
  - Treatment noncompliance [Unknown]
  - Biliary cyst [Unknown]
  - Hepatic steatosis [Unknown]
  - Iron deficiency anaemia [Unknown]
  - Helicobacter gastritis [Unknown]
  - Gastrooesophageal reflux disease [Unknown]
  - Intervertebral disc degeneration [Unknown]
  - Depression [Unknown]
  - Cytomegalovirus infection [Unknown]
  - Off label use [Unknown]
  - Vomiting [Unknown]
  - Blood pressure increased [Unknown]
  - Arthralgia [Unknown]
  - Nausea [Unknown]

NARRATIVE: CASE EVENT DATE: 20221031
